FAERS Safety Report 25956998 (Version 1)
Quarter: 2025Q4

REPORT INFORMATION
  Report Type: Spontaneous
  Country: US (occurrence: US)
  Receive Date: 20251024
  Receipt Date: 20251024
  Transmission Date: 20260117
  Serious: No
  Sender: STALLERGENES
  Company Number: US-STALCOR-2025-AER-02494

PATIENT
  Age: 13 Year
  Sex: Female

DRUGS (1)
  1. PALFORZIA [Suspect]
     Active Substance: PEANUT
     Indication: Food allergy
     Dosage: DISPENSED ON 30-JUL-2025
     Route: 048
     Dates: end: 202508

REACTIONS (2)
  - Therapy cessation [Unknown]
  - Drug intolerance [Unknown]
